FAERS Safety Report 6938022-9 (Version None)
Quarter: 2010Q3

REPORT INFORMATION
  Report Type: 
  Country: None (occurrence: None)
  Receive Date: 20100823
  Receipt Date: 20100823
  Transmission Date: 20110219
  Serious: Yes (Life-Threatening)
  Sender: FDA-Public Use
  Company Number: None

PATIENT
  Age: 55 Year
  Sex: Female
  Weight: 79.3795 kg

DRUGS (2)
  1. TIZANIDINE HCL [Suspect]
     Indication: MUSCULOSKELETAL STIFFNESS
     Dosage: 2MG Q4H PO
     Route: 048
     Dates: start: 20100515, end: 20100719
  2. LEVOTHYROXINE SODIUM [Suspect]

REACTIONS (10)
  - ALANINE AMINOTRANSFERASE INCREASED [None]
  - DRUG DOSE OMISSION [None]
  - FATIGUE [None]
  - LIVER DISORDER [None]
  - LIVER FUNCTION TEST ABNORMAL [None]
  - MEMORY IMPAIRMENT [None]
  - NAUSEA [None]
  - PRODUCT QUALITY ISSUE [None]
  - PYREXIA [None]
  - URINE COLOUR ABNORMAL [None]
